FAERS Safety Report 5426208-4 (Version None)
Quarter: 2007Q3

REPORT INFORMATION
  Report Type: 
  Country: None (occurrence: None)
  Receive Date: 20070827
  Receipt Date: 20070824
  Transmission Date: 20080115
  Serious: Yes (Other)
  Sender: FDA-Public Use
  Company Number: B0484556A

PATIENT
  Sex: Male

DRUGS (1)
  1. KREDEX [Suspect]
     Indication: MYOCARDIAL INFARCTION
     Route: 065

REACTIONS (3)
  - ERECTILE DYSFUNCTION [None]
  - PHARYNGEAL HAEMORRHAGE [None]
  - RAYNAUD'S PHENOMENON [None]
